FAERS Safety Report 6615444-7 (Version None)
Quarter: 2010Q1

REPORT INFORMATION
  Report Type: 
  Country: None (occurrence: None)
  Receive Date: 20100305
  Receipt Date: 20100225
  Transmission Date: 20100710
  Serious: Yes (Death)
  Sender: FDA-Public Use
  Company Number: DE-SANOFI-AVENTIS-2010SA009626

PATIENT
  Age: 75 Year
  Sex: Male
  Weight: 80 kg

DRUGS (13)
  1. MULTAQ [Suspect]
     Indication: ATRIAL FIBRILLATION
     Route: 048
     Dates: start: 20100113, end: 20100118
  2. MULTAQ [Suspect]
     Indication: CARDIOVERSION
     Route: 048
     Dates: start: 20100113, end: 20100118
  3. MULTAQ [Suspect]
     Route: 048
     Dates: start: 20100122, end: 20100203
  4. MULTAQ [Suspect]
     Route: 048
     Dates: start: 20100122, end: 20100203
  5. MARCUMAR [Concomitant]
     Indication: DRUG USE FOR UNKNOWN INDICATION
     Dosage: DOSAGE: AFTER INR 2-3 AS NEEDED
     Route: 048
     Dates: start: 20040101, end: 20100203
  6. BISOPROLOL FUMARATE [Concomitant]
     Indication: TACHYARRHYTHMIA
     Route: 048
     Dates: start: 20040101, end: 20100203
  7. DIGITOXIN INJ [Concomitant]
     Indication: TACHYARRHYTHMIA
     Route: 048
     Dates: start: 20100113, end: 20100203
  8. MADOPAR [Concomitant]
     Indication: PARKINSON'S DISEASE
     Route: 048
  9. RAMIPRIL/HYDROCHLOROTHIAZIDE [Concomitant]
     Indication: HYPERTENSION
     Dosage: DOSAGE: 1X1 DAILY 5/25 MG
     Route: 048
     Dates: start: 20040101, end: 20100203
  10. ALLOPURINOL [Concomitant]
     Indication: HYPERURICAEMIA
     Route: 048
  11. CARBIMAZOL [Concomitant]
     Indication: HYPERTHYROIDISM
     Route: 048
  12. SIMVASTATIN [Concomitant]
     Route: 048
  13. POTASSIUM [Concomitant]
     Indication: DRUG USE FOR UNKNOWN INDICATION
     Route: 048

REACTIONS (5)
  - ARRHYTHMIA [None]
  - DIARRHOEA [None]
  - HYPOKALAEMIA [None]
  - OFF LABEL USE [None]
  - SUDDEN CARDIAC DEATH [None]
